FAERS Safety Report 19523564 (Version 1)
Quarter: 2021Q3

REPORT INFORMATION
  Report Type: Spontaneous
  Country: IL (occurrence: IL)
  Receive Date: 20210712
  Receipt Date: 20210712
  Transmission Date: 20211014
  Serious: Yes (Hospitalization, Other)
  Sender: FDA-Public Use
  Company Number: IL-PFIZER INC-2021807525

PATIENT
  Age: 54 Year
  Sex: Male

DRUGS (6)
  1. ACTINOMYCIN D [Suspect]
     Active Substance: DACTINOMYCIN
     Indication: EWING^S SARCOMA
     Dosage: UNK, CYCLIC (SUBSTITUTED BY ACTINOMYCIN D AFTER A CUMULATIVE DOSE OF 375 MG/M2, 9 CYCLE CHEMOTHERAPY
  2. VINCRISTINE [Suspect]
     Active Substance: VINCRISTINE
     Indication: EWING^S SARCOMA
     Dosage: UNK, CYCLIC (9 CYCLE CHEMOTHERAPY WAS INITIATED WITH FULL DOSES)
  3. ETOPOSIDE. [Suspect]
     Active Substance: ETOPOSIDE
     Indication: EWING^S SARCOMA
     Dosage: UNK, CYCLIC (ALTERNATING EVERY THREE WEEKS 9 CYCLE CHEMOTHERAPY WAS INITIATED WITH FULL DOSES)
  4. CYCLOPHOSPHAMIDE. [Suspect]
     Active Substance: CYCLOPHOSPHAMIDE
     Indication: EWING^S SARCOMA
     Dosage: UNK, CYCLIC (9 CYCLE CHEMOTHERAPY WAS INITIATED WITH FULL DOSES)
  5. DOXORUBICIN HCL [Suspect]
     Active Substance: DOXORUBICIN HYDROCHLORIDE
     Indication: EWING^S SARCOMA
     Dosage: UNK, CYCLIC (9 CYCLE CHEMOTHERAPY WAS INITIATED WITH FULL DOSES)
  6. IFOSFAMIDE. [Suspect]
     Active Substance: IFOSFAMIDE
     Indication: EWING^S SARCOMA
     Dosage: UNK, CYCLIC (ALTERNATING EVERY THREE WEEKS ,9 CYCLE CHEMOTHERAPY WAS INITIATED WITH FULL DOSES)

REACTIONS (3)
  - Epididymitis [Unknown]
  - Urinary tract infection [Unknown]
  - Febrile neutropenia [Unknown]
